FAERS Safety Report 7113961-7 (Version None)
Quarter: 2010Q4

REPORT INFORMATION
  Report Type: 
  Country: None (occurrence: None)
  Receive Date: 20101119
  Receipt Date: 20101111
  Transmission Date: 20110411
  Serious: Yes (Life-Threatening, Hospitalization, Other)
  Sender: FDA-Public Use
  Company Number: A0872975A

PATIENT
  Age: 61 Year
  Sex: Male
  Weight: 71.4 kg

DRUGS (8)
  1. VOTRIENT [Suspect]
     Indication: METASTATIC NEOPLASM
     Dosage: 800MG PER DAY
     Dates: start: 20100617, end: 20100726
  2. RADIATION [Suspect]
  3. OCEAN SALINE [Concomitant]
  4. ROBITUSSIN DM [Concomitant]
  5. VICODIN [Concomitant]
  6. PEPCID [Concomitant]
  7. ENSURE [Concomitant]
  8. NASONEX [Concomitant]

REACTIONS (47)
  - ABDOMINAL PAIN [None]
  - ALANINE AMINOTRANSFERASE INCREASED [None]
  - ANAEMIA [None]
  - ANXIETY [None]
  - ARTHRITIS [None]
  - ASPARTATE AMINOTRANSFERASE INCREASED [None]
  - ASTHENIA [None]
  - BACK PAIN [None]
  - BLOOD ALKALINE PHOSPHATASE INCREASED [None]
  - BLOOD BILIRUBIN INCREASED [None]
  - BUDD-CHIARI SYNDROME [None]
  - CANDIDIASIS [None]
  - CHEST PAIN [None]
  - CHILLS [None]
  - CHOLELITHIASIS [None]
  - COUGH [None]
  - DEAFNESS [None]
  - DECREASED APPETITE [None]
  - DEEP VEIN THROMBOSIS [None]
  - DIARRHOEA [None]
  - DISCOMFORT [None]
  - DYSPHAGIA [None]
  - DYSPHONIA [None]
  - DYSPNOEA [None]
  - EPISTAXIS [None]
  - FATIGUE [None]
  - HEPATITIS CHOLESTATIC [None]
  - HYPOAESTHESIA [None]
  - JAUNDICE [None]
  - LIVER FUNCTION TEST ABNORMAL [None]
  - MALIGNANT NEOPLASM PROGRESSION [None]
  - NAUSEA [None]
  - OEDEMA PERIPHERAL [None]
  - PELIOSIS HEPATIS [None]
  - PLEURITIC PAIN [None]
  - PULMONARY THROMBOSIS [None]
  - RALES [None]
  - RHONCHI [None]
  - SKIN DISORDER [None]
  - SPUTUM DISCOLOURED [None]
  - THROAT IRRITATION [None]
  - TINNITUS [None]
  - VENA CAVA FILTER INSERTION [None]
  - VENOOCCLUSIVE DISEASE [None]
  - VOMITING [None]
  - WEIGHT DECREASED [None]
  - WHEEZING [None]
